FAERS Safety Report 5585457-5 (Version None)
Quarter: 2008Q1

REPORT INFORMATION
  Report Type: 
  Country: None (occurrence: None)
  Receive Date: 20080109
  Receipt Date: 20080102
  Transmission Date: 20080703
  Serious: Yes (Other)
  Sender: FDA-Public Use
  Company Number: GB-ASTRAZENECA-2007GB01903

PATIENT
  Age: 62 Year
  Sex: Male

DRUGS (14)
  1. LIDOCAINE [Suspect]
     Indication: ANAESTHESIA
     Route: 047
     Dates: start: 20070402, end: 20070402
  2. ADRENALINE [Suspect]
     Indication: EYE IRRITATION
     Route: 047
     Dates: start: 20070402, end: 20070402
  3. BETAMETHASONE [Suspect]
     Indication: POSTOPERATIVE CARE
     Route: 047
     Dates: start: 20070402, end: 20070402
  4. CYCLOPENTOLATE HCL [Suspect]
     Indication: PREOPERATIVE CARE
     Route: 047
     Dates: start: 20070402, end: 20070402
  5. CYCLOPENTOLATE HCL [Suspect]
     Route: 047
  6. HYALURONATE SODIUM [Suspect]
     Indication: CATARACT OPERATION
     Route: 047
     Dates: start: 20070402, end: 20070402
  7. NEOMYCIN [Suspect]
     Indication: POSTOPERATIVE CARE
     Route: 047
     Dates: start: 20070402, end: 20070402
  8. OCUFEN [Suspect]
     Indication: PREOPERATIVE CARE
     Route: 047
     Dates: start: 20070402, end: 20070402
  9. PHENYLEPHRINE [Suspect]
     Indication: PREOPERATIVE CARE
     Route: 047
     Dates: start: 20070402, end: 20070402
  10. PHENYLEPHRINE [Suspect]
     Route: 047
  11. POVIDONE IODINE [Suspect]
     Indication: CATARACT OPERATION
     Route: 047
     Dates: start: 20070402, end: 20070402
  12. PROXYMETACAINE [Suspect]
     Indication: ANALGESIA
     Route: 065
     Dates: start: 20070402, end: 20070402
  13. VANCOMYCIN [Suspect]
     Indication: EYE IRRITATION
     Route: 047
     Dates: start: 20070402, end: 20070402
  14. BALANCED SALT SOLUTION [Suspect]

REACTIONS (1)
  - TOXIC ANTERIOR SEGMENT SYNDROME [None]
